FAERS Safety Report 7301485-3 (Version None)
Quarter: 2011Q1

REPORT INFORMATION
  Report Type: 
  Country: None (occurrence: None)
  Receive Date: 20110208
  Receipt Date: 20110128
  Transmission Date: 20110831
  Serious: Yes (Death)
  Sender: FDA-Public Use
  Company Number: TPA2011A00136

PATIENT
  Age: 95 Year
  Sex: Female

DRUGS (6)
  1. TRANSTEC (BUPRENORPHINE) [Concomitant]
  2. NEBIVOLOL HCL [Concomitant]
  3. TORSEMIDE [Concomitant]
  4. ADENURIC (FEBUXOSTAT) [Suspect]
     Indication: GOUTY TOPHUS
     Dosage: 80 MG (80 MG, 1 IN 1 D), ORAL
     Route: 048
     Dates: start: 20101215, end: 20101216
  5. LERCANIDIPINE [Concomitant]
  6. IBUPROFEN [Concomitant]

REACTIONS (3)
  - CEREBROVASCULAR ACCIDENT [None]
  - ATRIAL FIBRILLATION [None]
  - FALL [None]
